FAERS Safety Report 5962382-9 (Version None)
Quarter: 2008Q4

REPORT INFORMATION
  Report Type: 
  Country: None (occurrence: None)
  Receive Date: 20081121
  Receipt Date: 20081114
  Transmission Date: 20090506
  Serious: Yes (Hospitalization, Other)
  Sender: FDA-Public Use
  Company Number: PHBS2008US00690

PATIENT
  Age: 46 Year
  Sex: Male

DRUGS (7)
  1. BASILIXIMAB [Suspect]
     Indication: HEART TRANSPLANT
     Dosage: 20 MG/DAY
     Route: 042
  2. BASILIXIMAB [Suspect]
     Dosage: 20  MG/DAY
     Route: 042
  3. TACROLIMUS [Suspect]
     Indication: HEART TRANSPLANT
     Dosage: 7 MG, BID
     Route: 048
  4. MYCOPHENOLATE MOFETIL [Suspect]
     Indication: HEART TRANSPLANT
     Dosage: 1 G, BID
     Route: 048
  5. PREDNISOLONE [Suspect]
     Indication: HEART TRANSPLANT
     Dosage: 30 MG/DAY
     Route: 048
  6. HEARTMATE [Concomitant]
  7. TRIMETHOPRIM [Concomitant]

REACTIONS (11)
  - BLOOD CREATININE INCREASED [None]
  - BRONCHOPULMONARY ASPERGILLOSIS [None]
  - CHEST PAIN [None]
  - DEBRIDEMENT [None]
  - HEART TRANSPLANT REJECTION [None]
  - PYREXIA [None]
  - RENAL FAILURE ACUTE [None]
  - RHABDOMYOLYSIS [None]
  - WOUND INFECTION [None]
  - WOUND SECRETION [None]
  - ZYGOMYCOSIS [None]
